FAERS Safety Report 4678089-4 (Version None)
Quarter: 2005Q2

REPORT INFORMATION
  Report Type: 
  Country: None (occurrence: None)
  Receive Date: 20050601
  Receipt Date: 20050520
  Transmission Date: 20051028
  Serious: Yes (Hospitalization)
  Sender: FDA-Public Use
  Company Number: JP-JNJFOC-20050306981

PATIENT
  Sex: Female
  Weight: 67.3 kg

DRUGS (15)
  1. REMICADE [Suspect]
     Dosage: TOTAL  OF 9 INFUSIONS
     Route: 042
  2. REMICADE [Suspect]
     Indication: RHEUMATOID ARTHRITIS
     Route: 042
  3. RHEUMATREX [Suspect]
     Route: 049
  4. RHEUMATREX [Suspect]
     Route: 049
  5. RHEUMATREX [Suspect]
     Route: 049
  6. RHEUMATREX [Suspect]
     Route: 049
  7. RHEUMATREX [Suspect]
     Route: 049
  8. RHEUMATREX [Suspect]
     Indication: RHEUMATOID ARTHRITIS
     Route: 049
  9. PREDONIN [Suspect]
     Indication: DRUG USE FOR UNKNOWN INDICATION
     Route: 049
  10. LOXONIN [Concomitant]
     Route: 049
  11. ALFAROL [Concomitant]
     Indication: PROPHYLAXIS
     Route: 049
  12. METALCAPTASE [Concomitant]
     Indication: SCLERODERMA
     Route: 049
  13. ZANTAC [Concomitant]
     Indication: PROPHYLAXIS
     Route: 049
  14. MARZULENE S [Concomitant]
     Route: 049
  15. MARZULENE S [Concomitant]
     Indication: PROPHYLAXIS
     Route: 049

REACTIONS (16)
  - ANOREXIA [None]
  - BLOOD CREATININE DECREASED [None]
  - COUGH [None]
  - DRUG INTERACTION [None]
  - HAEMATOCRIT DECREASED [None]
  - HAEMOGLOBIN DECREASED [None]
  - LYMPHOCYTE PERCENTAGE DECREASED [None]
  - NAUSEA [None]
  - NEUTROPHIL PERCENTAGE INCREASED [None]
  - PHARYNGOLARYNGEAL PAIN [None]
  - PLATELET COUNT DECREASED [None]
  - PNEUMONIA MYCOPLASMAL [None]
  - PRODUCTIVE COUGH [None]
  - PYREXIA [None]
  - REFUSAL OF TREATMENT BY PATIENT [None]
  - WHITE BLOOD CELL COUNT INCREASED [None]
